FAERS Safety Report 4338818-6 (Version None)
Quarter: 2004Q1

REPORT INFORMATION
  Report Type: 
  Country: None (occurrence: None)
  Receive Date: 20040329
  Receipt Date: 20040212
  Transmission Date: 20041129
  Serious: No
  Sender: FDA-Public Use
  Company Number: 04P-163-0249993-00

PATIENT
  Age: 72 Year
  Sex: Female
  Weight: 59.4212 kg

DRUGS (14)
  1. HUMIRA [Suspect]
     Indication: RHEUMATOID ARTHRITIS
     Dosage: 40 MG, 1 IN 2 WK, SUBCUTANEOUS
     Route: 058
     Dates: start: 20031124, end: 20031208
  2. PREDNISONE [Concomitant]
  3. RABEPRAZOLE SODIUM [Concomitant]
  4. DIOVAN [Concomitant]
  5. FUROSEMIDE [Concomitant]
  6. SINGULAIR [Concomitant]
  7. SERTRALINE HYDROCHLORIDE [Concomitant]
  8. QUININE [Concomitant]
  9. COMBIVENT [Concomitant]
  10. VICODIN [Concomitant]
  11. BUDESONIDE [Concomitant]
  12. SEROVENT [Concomitant]
  13. PIRBUTEROL ACETATE [Concomitant]
  14. OXYGEN [Concomitant]

REACTIONS (1)
  - PRODUCTIVE COUGH [None]
